FAERS Safety Report 7915319-7 (Version None)
Quarter: 2011Q4

REPORT INFORMATION
  Report Type: 
  Country: None (occurrence: None)
  Receive Date: 20111115
  Receipt Date: 20111107
  Transmission Date: 20120403
  Serious: Yes (Other)
  Sender: FDA-Public Use
  Company Number: PHHY2011US69233

PATIENT
  Age: 16 Year
  Sex: Female

DRUGS (1)
  1. TOBI [Suspect]
     Indication: CYSTIC FIBROSIS
     Dosage: 300 MG, BID (21 DAYS ON AND 21 DAYS OFF)
     Dates: start: 20100414

REACTIONS (2)
  - PNEUMONIA [None]
  - INFECTION [None]
